FAERS Safety Report 8282103-7 (Version None)
Quarter: 2012Q2

REPORT INFORMATION
  Report Type: 
  Country: None (occurrence: None)
  Receive Date: 20120413
  Receipt Date: 20120405
  Transmission Date: 20120825
  Serious: Yes (Other)
  Sender: FDA-Public Use
  Company Number: FR-BAYER-2012-034297

PATIENT
  Age: 75 Year
  Sex: Female

DRUGS (5)
  1. ASPIRIN [Concomitant]
  2. ACETAMINOPHEN [Concomitant]
  3. CIPROFLOXACIN HYDROCHLORIDE [Suspect]
     Indication: VIRAL INFECTION
     Dosage: 2 DF, QD
     Dates: start: 20120130
  4. RAMIPRIL [Concomitant]
  5. ALLOPURINOL [Concomitant]

REACTIONS (1)
  - THROMBOSIS [None]
